FAERS Safety Report 6495805-X (Version None)
Quarter: 2009Q4

REPORT INFORMATION
  Report Type: 
  Country: None (occurrence: None)
  Receive Date: 20091214
  Receipt Date: 20090813
  Transmission Date: 20100525
  Serious: No
  Sender: FDA-Public Use
  Company Number: US-BRISTOL-MYERS SQUIBB COMPANY-14740740

PATIENT
  Age: 57 Year
  Sex: Male

DRUGS (4)
  1. ABILIFY [Suspect]
     Indication: AGITATION
     Route: 030
  2. GEODON [Concomitant]
  3. HALDOL [Concomitant]
  4. THORAZINE [Concomitant]

REACTIONS (1)
  - DRUG INEFFECTIVE [None]
